FAERS Safety Report 5186441-6 (Version None)
Quarter: 2006Q4

REPORT INFORMATION
  Report Type: 
  Country: None (occurrence: None)
  Receive Date: 20061220
  Receipt Date: 20061214
  Transmission Date: 20070319
  Serious: Yes (Hospitalization)
  Sender: FDA-Public Use
  Company Number: US-ELI_LILLY_AND_COMPANY-US200612003042

PATIENT
  Age: 47 Year
  Sex: Female
  Weight: 68.48 kg

DRUGS (10)
  1. SOMATROPIN [Suspect]
     Indication: HYPOPITUITARISM
     Dosage: 0.5 MG, DAILY (1/D)
     Dates: start: 19980601, end: 20061201
  2. CORTEF [Concomitant]
     Dosage: 30 MG, DAILY (1/D)
  3. XANAX                                   /USA/ [Concomitant]
  4. SYNTHROID [Concomitant]
     Dosage: 0.125 UG, DAILY (1/D)
  5. RESTORIL [Concomitant]
     Dosage: 15 UNK, DAILY (1/D)
  6. PROTONIX [Concomitant]
     Dosage: 40 UNK, 2/D
  7. ZITHROMAX [Concomitant]
  8. MOTRIN [Concomitant]
     Dosage: 12 UNK, DAILY (1/D)
  9. PERCOCET [Concomitant]
     Dosage: 4 UNK, DAILY (1/D)
  10. NEURONTIN [Concomitant]
     Dosage: 800 MG, 3/D

REACTIONS (5)
  - ADRENAL DISORDER [None]
  - AGITATION [None]
  - ILL-DEFINED DISORDER [None]
  - MULTIPLE DRUG OVERDOSE [None]
  - RENAL FAILURE [None]
